FAERS Safety Report 11890334 (Version 1)
Quarter: 2016Q1

REPORT INFORMATION
  Report Type: Spontaneous
  Country: US (occurrence: US)
  Receive Date: 20160105
  Receipt Date: 20160105
  Transmission Date: 20160526
  Serious: No
  Sender: FDA-Public Use
  Company Number: US-GLAXOSMITHKLINE-US2015184035

PATIENT
  Sex: Male

DRUGS (1)
  1. FLONASE [Suspect]
     Active Substance: FLUTICASONE PROPIONATE
     Indication: NASAL CONGESTION
     Dosage: UNK, 60 COUNT
     Dates: start: 20151227, end: 20151228

REACTIONS (3)
  - Nasal obstruction [Recovered/Resolved]
  - Eye swelling [Recovered/Resolved]
  - Sinus disorder [Recovered/Resolved]
